FAERS Safety Report 7725216-8 (Version None)
Quarter: 2011Q3

REPORT INFORMATION
  Report Type: 
  Country: None (occurrence: None)
  Receive Date: 20110901
  Receipt Date: 20110824
  Transmission Date: 20111222
  Serious: Yes (Hospitalization, Other)
  Sender: FDA-Public Use
  Company Number: US-RB-031796-11

PATIENT
  Age: 35 Year
  Sex: Male

DRUGS (1)
  1. BUPRENORPHINE [Suspect]
     Indication: DRUG DEPENDENCE
     Route: 060
     Dates: start: 20090101, end: 20110818

REACTIONS (2)
  - CEREBROVASCULAR ACCIDENT [None]
  - CAROTID ARTERY DISSECTION [None]
